FAERS Safety Report 12455248 (Version 1)
Quarter: 2016Q2

REPORT INFORMATION
  Report Type: Spontaneous
  Country: FR (occurrence: FR)
  Receive Date: 20160610
  Receipt Date: 20160610
  Transmission Date: 20160815
  Serious: Yes (Hospitalization)
  Sender: FDA-Public Use
  Company Number: PHHY2016FR079527

PATIENT
  Sex: Female
  Weight: 52 kg

DRUGS (11)
  1. ANAFRANIL [Suspect]
     Active Substance: CLOMIPRAMINE HYDROCHLORIDE
     Indication: SUICIDE ATTEMPT
     Dosage: 500 MG, QD (TWENTY DOSAGE FORMS)
     Route: 048
     Dates: start: 20160420, end: 20160420
  2. SERESTA [Suspect]
     Active Substance: OXAZEPAM
     Indication: SUICIDE ATTEMPT
     Dosage: 1000 MG, QD (TWENTY DOSAGE FORMS )
     Route: 048
     Dates: start: 20160420, end: 20160420
  3. TERCIAN [Suspect]
     Active Substance: CYAMEMAZINE
     Indication: SUICIDE ATTEMPT
     Dosage: 500 MG, QD (TWENTY DOSAGE FORMS)
     Route: 048
     Dates: start: 20160420, end: 20160420
  4. THERALENE [Concomitant]
     Active Substance: TRIMEPRAZINE
     Indication: PRODUCT USED FOR UNKNOWN INDICATION
     Dosage: 50 MG, IN EVENING
     Route: 065
  5. DIAZEPAM. [Suspect]
     Active Substance: DIAZEPAM
     Indication: SUICIDE ATTEMPT
     Dosage: 600 MG, QD (SIXTY DOSAGE FORMS )
     Route: 048
     Dates: start: 20160420, end: 20160420
  6. TERALITHE [Suspect]
     Active Substance: LITHIUM CARBONATE
     Indication: SUICIDE ATTEMPT
     Dosage: 26 G, QD (SIXTY-FIVE DOSAGE FORMS)
     Route: 048
     Dates: start: 20160420, end: 20160420
  7. CIRCADIN [Concomitant]
     Active Substance: MELATONIN
     Indication: PRODUCT USED FOR UNKNOWN INDICATION
     Dosage: 2 DF, IN THE EVENING
     Route: 065
  8. VENLAFAXINE [Suspect]
     Active Substance: VENLAFAXINE HYDROCHLORIDE
     Indication: SUICIDE ATTEMPT
     Dosage: 6600 MG, ONCE/SINGLE (EIGHTY-EIGHT DOSAGE FORMS )
     Route: 048
     Dates: start: 20160420, end: 20160420
  9. MIANSERIN HYDROCHLORIDE [Suspect]
     Active Substance: MIANSERIN HYDROCHLORIDE
     Indication: SUICIDE ATTEMPT
     Dosage: 2460 MG, QD (FORTY-FOUR DOSAGE FORMS)
     Route: 048
     Dates: start: 20160420, end: 20160420
  10. NORSET [Suspect]
     Active Substance: MIRTAZAPINE
     Indication: SUICIDE ATTEMPT
     Dosage: 300 MG, QD (TWENTY DOSAGE FORMS )
     Route: 048
     Dates: start: 20160420, end: 20160420
  11. LAMICTAL [Suspect]
     Active Substance: LAMOTRIGINE
     Indication: SUICIDE ATTEMPT
     Dosage: 500 MG, QD (TWENTY DOSAGE FORMS )
     Route: 048
     Dates: start: 20160420, end: 20160420

REACTIONS (5)
  - Coma [Recovered/Resolved]
  - Hepatic function abnormal [Recovered/Resolved]
  - Factor V deficiency [Recovered/Resolved]
  - Toxicity to various agents [Recovered/Resolved]
  - Bundle branch block right [Unknown]
